FAERS Safety Report 7376042-3 (Version None)
Quarter: 2011Q1

REPORT INFORMATION
  Report Type: 
  Country: None (occurrence: None)
  Receive Date: 20110325
  Receipt Date: 20110317
  Transmission Date: 20110831
  Serious: Yes (Hospitalization, Other)
  Sender: FDA-Public Use
  Company Number: US-MERCK-1010USA01920

PATIENT
  Age: 71 Year
  Sex: Female
  Weight: 66 kg

DRUGS (5)
  1. FOSAMAX [Suspect]
     Route: 048
     Dates: start: 20080216, end: 20100517
  2. CENTRUM [Concomitant]
     Route: 065
     Dates: start: 19950101
  3. FOSAMAX [Suspect]
     Indication: OSTEOPOROSIS
     Route: 048
     Dates: start: 20010620, end: 20080115
  4. FOSAMAX [Suspect]
     Route: 048
     Dates: start: 20080216, end: 20100517
  5. FOSAMAX [Suspect]
     Indication: OSTEOPENIA
     Route: 048
     Dates: start: 20010620, end: 20080115

REACTIONS (27)
  - BACK PAIN [None]
  - SYNCOPE [None]
  - HYPERTENSION [None]
  - FIBROMYALGIA [None]
  - FEMUR FRACTURE [None]
  - HIP FRACTURE [None]
  - NECK PAIN [None]
  - LYME DISEASE [None]
  - ANXIETY [None]
  - CAROTID ARTERY DISEASE [None]
  - ARTHRITIS [None]
  - HYPERSENSITIVITY [None]
  - HYPERCHOLESTEROLAEMIA [None]
  - PAIN [None]
  - BREAST CALCIFICATIONS [None]
  - WEIGHT INCREASED [None]
  - PAIN IN EXTREMITY [None]
  - CONVULSION [None]
  - ARTERIOSCLEROSIS [None]
  - OSTEOARTHROPATHY [None]
  - BRONCHITIS [None]
  - CEREBRAL ISCHAEMIA [None]
  - FALL [None]
  - BACTERIAL INFECTION [None]
  - HYPOAESTHESIA [None]
  - ATROPHIC VULVOVAGINITIS [None]
  - DEPRESSION [None]
